FAERS Safety Report 12154860 (Version 2)
Quarter: 2016Q1

REPORT INFORMATION
  Report Type: Spontaneous
  Country: FR (occurrence: FR)
  Receive Date: 20160307
  Receipt Date: 20160322
  Transmission Date: 20160526
  Serious: Yes (Hospitalization)
  Sender: FDA-Public Use
  Company Number: FR-SA-2016SA039134

PATIENT
  Age: 68 Year
  Sex: Female

DRUGS (3)
  1. ALTIM [Suspect]
     Active Substance: CORTIVAZOL
     Indication: ARTHRALGIA
     Route: 014
     Dates: start: 20150722, end: 20150722
  2. ENBREL [Suspect]
     Active Substance: ETANERCEPT
     Indication: SPONDYLITIS
     Route: 058
     Dates: end: 201510
  3. ARAVA [Suspect]
     Active Substance: LEFLUNOMIDE
     Indication: SPONDYLITIS
     Route: 048

REACTIONS (2)
  - Osteonecrosis [Not Recovered/Not Resolved]
  - Product use issue [Unknown]

NARRATIVE: CASE EVENT DATE: 20160210
